FAERS Safety Report 23310616 (Version 1)
Quarter: 2023Q4

REPORT INFORMATION
  Report Type: Spontaneous
  Country: AU (occurrence: AU)
  Receive Date: 20231218
  Receipt Date: 20231218
  Transmission Date: 20240110
  Serious: Yes (Other)
  Sender: FDA-Public Use
  Company Number: None

PATIENT
  Age: 42 Year
  Sex: Male

DRUGS (5)
  1. VANCOMYCIN HYDROCHLORIDE [Suspect]
     Active Substance: VANCOMYCIN HYDROCHLORIDE
  2. CIPROFLOXACIN HYDROCHLORIDE [Suspect]
     Active Substance: CIPROFLOXACIN HYDROCHLORIDE
  3. CLINDAMYCIN [Suspect]
     Active Substance: CLINDAMYCIN
  4. MEROPENEM [Suspect]
     Active Substance: MEROPENEM
  5. OSELTAMIVIR [Suspect]
     Active Substance: OSELTAMIVIR

REACTIONS (6)
  - Anuria [Unknown]
  - Acute kidney injury [Unknown]
  - Congestive hepatopathy [Unknown]
  - Metabolic acidosis [Unknown]
  - Rhabdomyolysis [Unknown]
  - Shock [Unknown]
